FAERS Safety Report 8358081-9 (Version None)
Quarter: 2012Q2

REPORT INFORMATION
  Report Type: 
  Country: None (occurrence: None)
  Receive Date: 20120514
  Receipt Date: 20120509
  Transmission Date: 20120825
  Serious: Yes (Death)
  Sender: FDA-Public Use
  Company Number: JP-CELGENEUS-087-50794-12033418

PATIENT
  Age: 79 Year
  Sex: Male
  Weight: 66 kg

DRUGS (10)
  1. PREDOPA [Concomitant]
     Route: 065
     Dates: start: 20120326, end: 20120326
  2. GRAN [Concomitant]
     Route: 065
     Dates: start: 20120326, end: 20120326
  3. FLURBIPROFEN [Concomitant]
     Route: 065
     Dates: start: 20120326, end: 20120326
  4. MEROPENEM [Concomitant]
     Route: 065
     Dates: start: 20120326, end: 20120326
  5. AMLODIPINE [Concomitant]
     Route: 065
     Dates: end: 20120326
  6. VIDAZA [Suspect]
     Dosage: 75 MILLIGRAM/SQ. METER
     Route: 041
     Dates: start: 20120315, end: 20120321
  7. EXJADE [Concomitant]
     Route: 065
     Dates: end: 20120326
  8. GRANISETRON HCL [Concomitant]
     Route: 065
     Dates: start: 20120315, end: 20120321
  9. ALLEGRA [Concomitant]
     Route: 065
     Dates: start: 20120315, end: 20120326
  10. ZOSYN [Concomitant]
     Route: 065
     Dates: start: 20120315, end: 20120326

REACTIONS (3)
  - NEUTROPHIL COUNT DECREASED [None]
  - SEPTIC SHOCK [None]
  - WHITE BLOOD CELL COUNT DECREASED [None]
